FAERS Safety Report 5877103-8 (Version None)
Quarter: 2008Q3

REPORT INFORMATION
  Report Type: 
  Country: None (occurrence: None)
  Receive Date: 20080910
  Receipt Date: 20080909
  Transmission Date: 20090109
  Serious: Yes (Other)
  Sender: FDA-Public Use
  Company Number: PHEH2008US07090

PATIENT
  Sex: Female

DRUGS (2)
  1. VIVELLE-DOT [Suspect]
     Dosage: 0.05 MG/DAY
     Route: 062
  2. VIVELLE-DOT [Suspect]
     Dosage: 0.0375 MG/DAY
     Route: 062

REACTIONS (5)
  - ABDOMINAL DISTENSION [None]
  - BURNING SENSATION [None]
  - CERVICAL SPINAL STENOSIS [None]
  - HOT FLUSH [None]
  - RASH [None]
